FAERS Safety Report 8683066 (Version 4)
Quarter: 2012Q4

REPORT INFORMATION
  Report Type: 
  Country: US (occurrence: US)
  Receive Date: 20120725
  Receipt Date: 20121003
  Transmission Date: 20130627
  Serious: Yes (Other)
  Sender: FDA-Public Use
  Company Number: US-PFIZER INC-2012176959

PATIENT
  Age: 51 Year
  Sex: Female
  Weight: 125 kg

DRUGS (10)
  1. RELPAX [Suspect]
     Indication: HEADACHE
     Dosage: 40 mg, take 1 tab at onset of ha; repeat x 1 in 2 hours if needed tablet oral
     Route: 048
  2. VICODIN [Concomitant]
     Indication: HEADACHE
     Dosage: 5-500 mg tablet take 1-2 prn
     Route: 048
  3. VITAMIN B12 [Concomitant]
     Dosage: 1,000 mcg/ml solution take 1 injection twice a month
  4. VERAPAMIL [Concomitant]
     Dosage: 120 mg, 3x/day
     Route: 048
  5. SYNTHROID [Concomitant]
     Dosage: 75 ug, 1x/day
  6. ATENOLOL [Concomitant]
     Dosage: 50 mg, 2x/day
     Route: 048
  7. IBUPROFEN [Concomitant]
     Dosage: prn
  8. ZYRTEC [Concomitant]
     Dosage: 10 mg, 1x/day
     Route: 048
  9. CARBAMAZEPINE [Concomitant]
     Indication: PROPHYLAXIS
     Dosage: 200 mg, 2x/day
  10. CARBAMAZEPINE [Concomitant]
     Dosage: 200 mg, 3x/day

REACTIONS (3)
  - Migraine with aura [Unknown]
  - Headache [Unknown]
  - Facial pain [Unknown]
